FAERS Safety Report 8885568 (Version 1)
Quarter: 2012Q4

REPORT INFORMATION
  Report Type: 
  Country: US (occurrence: US)
  Receive Date: 20121105
  Receipt Date: 20121105
  Transmission Date: 20130627
  Serious: Yes (Other)
  Sender: FDA-Public Use
  Company Number: US-JNJFOC-20121014885

PATIENT
  Age: 14 Year
  Sex: Male
  Weight: 58.51 kg

DRUGS (2)
  1. BENGAY ULTRA STRENGTH [Suspect]
     Indication: PAIN IN EXTREMITY
     Dosage: thin layer heel and up to 2/3 of calf
     Route: 061
     Dates: start: 20121017
  2. IBUPROFEN [Concomitant]
     Indication: PAIN IN EXTREMITY
     Dosage: 1-2 tablets daily
     Route: 065

REACTIONS (4)
  - Application site vesicles [Not Recovered/Not Resolved]
  - Application site burn [Not Recovered/Not Resolved]
  - Skin exfoliation [Not Recovered/Not Resolved]
  - Application site discolouration [Not Recovered/Not Resolved]
